FAERS Safety Report 5866503-8 (Version None)
Quarter: 2008Q3

REPORT INFORMATION
  Report Type: 
  Country: None (occurrence: None)
  Receive Date: 20080902
  Receipt Date: 20080902
  Transmission Date: 20090109
  Serious: Yes (Hospitalization)
  Sender: FDA-Public Use
  Company Number: PHEH1998US02976

PATIENT
  Sex: Male
  Weight: 80.7 kg

DRUGS (11)
  1. NEORAL [Suspect]
     Route: 048
     Dates: end: 19980623
  2. LASIX [Concomitant]
  3. XANAX [Concomitant]
  4. DARVOCET [Concomitant]
  5. VICODIN [Concomitant]
  6. SOLU-MEDROL [Concomitant]
  7. BENADRYL [Concomitant]
  8. VITAMIN E [Concomitant]
  9. IMURAN [Concomitant]
  10. SOLU-CORTEF [Concomitant]
  11. PREDNISONE TAB [Concomitant]

REACTIONS (2)
  - ANGIOEDEMA [None]
  - RENAL IMPAIRMENT [None]
